FAERS Safety Report 8786136 (Version 1)
Quarter: 2012Q4

REPORT INFORMATION
  Report Type: 
  Country: US (occurrence: US)
  Receive Date: 20120914
  Receipt Date: 20120914
  Transmission Date: 20130627
  Serious: Yes (Life-Threatening, Hospitalization)
  Sender: FDA-Public Use
  Company Number: US-009507513-1209USA005665

PATIENT

DRUGS (3)
  1. DEXAMETHASONE [Suspect]
     Route: 048
  2. MK-0683 [Suspect]
     Indication: GLIOBLASTOMA MULTIFORME
     Dosage: 300 mg, qd
     Route: 048
     Dates: start: 20120529, end: 20120709
  3. TEMOZOLOMIDE [Suspect]
     Indication: GLIOBLASTOMA MULTIFORME
     Dosage: 75 mg/m2, qd
     Route: 048
     Dates: start: 20120529, end: 20120709

REACTIONS (1)
  - Large intestine perforation [Not Recovered/Not Resolved]
